FAERS Safety Report 4652411-7 (Version None)
Quarter: 2005Q2

REPORT INFORMATION
  Report Type: 
  Country: None (occurrence: None)
  Receive Date: 20050504
  Receipt Date: 20050426
  Transmission Date: 20051028
  Serious: Yes (Hospitalization)
  Sender: FDA-Public Use
  Company Number: FR-SANOFI-SYNTHELABO-F01200500644

PATIENT
  Sex: Male
  Weight: 40 kg

DRUGS (9)
  1. OXALIPLATIN [Suspect]
     Indication: OESOPHAGEAL CARCINOMA
     Route: 042
  2. FLUOROURACIL [Suspect]
     Route: 042
  3. LEUCOVORIN CALCIUM [Suspect]
     Route: 042
  4. RADIOTHERAPY [Concomitant]
     Indication: OESOPHAGEAL CARCINOMA
     Dosage: TOTAL DOSE OF FRACTION ADMINISTERED BEFORE SAE: 38 GY
     Route: 050
     Dates: start: 20050415, end: 20050415
  5. ZOVIRAX [Concomitant]
     Dosage: 500 MG
     Route: 065
  6. TAGAMET [Concomitant]
     Dosage: 800 MG
     Route: 065
  7. SOLUPRED [Concomitant]
     Dosage: 40 MG
     Route: 065
  8. TRIFLUCAN [Concomitant]
  9. POLYSILANE [Concomitant]

REACTIONS (2)
  - DYSPHAGIA [None]
  - MUCOSAL INFLAMMATION [None]
